FAERS Safety Report 16580213 (Version 1)
Quarter: 2019Q3

REPORT INFORMATION
  Report Type: Report from Study
  Country: RU (occurrence: RU)
  Receive Date: 20190716
  Receipt Date: 20190716
  Transmission Date: 20191004
  Serious: Yes (Hospitalization)
  Sender: FDA-Public Use
  Company Number: RU-ASTRAZENECA-2019SF00788

PATIENT
  Age: 61 Year
  Sex: Female
  Weight: 89 kg

DRUGS (2)
  1. FORXIGA [Suspect]
     Active Substance: DAPAGLIFLOZIN
     Indication: TYPE 2 DIABETES MELLITUS
     Route: 048
     Dates: start: 201906
  2. AMARYL M [Concomitant]
     Active Substance: GLIMEPIRIDE\METFORMIN

REACTIONS (4)
  - Leukocyturia [Unknown]
  - Renal pain [Unknown]
  - Genital discomfort [Unknown]
  - Haematuria [Unknown]
